FAERS Safety Report 5360904-2 (Version None)
Quarter: 2007Q2

REPORT INFORMATION
  Report Type: 
  Country: None (occurrence: None)
  Receive Date: 20070618
  Receipt Date: 20070615
  Transmission Date: 20071010
  Serious: Yes (Life-Threatening)
  Sender: FDA-Public Use
  Company Number: US-BRISTOL-MYERS SQUIBB COMPANY-13816079

PATIENT
  Age: 70 Year
  Sex: Male

DRUGS (12)
  1. DEFINITY [Suspect]
     Indication: ECHOCARDIOGRAM
     Dates: start: 20070615, end: 20070615
  2. ALBUTEROL [Concomitant]
  3. ASPIRIN [Concomitant]
  4. COREG [Concomitant]
  5. COZAAR [Concomitant]
  6. FLUOXETINE [Concomitant]
  7. FUROSEMIDE [Concomitant]
  8. KLOR-CON [Concomitant]
  9. CHANTIX [Concomitant]
  10. ZOCOR [Concomitant]
  11. WARFARIN SODIUM [Concomitant]
  12. VIAGRA [Concomitant]

REACTIONS (1)
  - CARDIAC ARREST [None]
